FAERS Safety Report 18683350 (Version 1)
Quarter: 2020Q4

REPORT INFORMATION
  Report Type: Spontaneous
  Country: US (occurrence: US)
  Receive Date: 20201229
  Receipt Date: 20201229
  Transmission Date: 20210114
  Serious: No
  Sender: FDA-Public Use
  Company Number: None

PATIENT
  Age: 76 Year
  Sex: Female

DRUGS (1)
  1. AMBRISENTAN TAB 10MG [Suspect]
     Active Substance: AMBRISENTAN
     Route: 048
     Dates: start: 201802

REACTIONS (7)
  - Haemoglobin decreased [None]
  - Urinary retention [None]
  - Weight decreased [None]
  - Diarrhoea [None]
  - Hepatic cirrhosis [None]
  - Decreased appetite [None]
  - COVID-19 [None]

NARRATIVE: CASE EVENT DATE: 20201107
